FAERS Safety Report 7096481-8 (Version None)
Quarter: 2010Q4

REPORT INFORMATION
  Report Type: 
  Country: None (occurrence: None)
  Receive Date: 20101111
  Receipt Date: 20101105
  Transmission Date: 20110411
  Serious: Yes (Hospitalization, Congenital Anomaly)
  Sender: FDA-Public Use
  Company Number: A0680492A

PATIENT
  Sex: Male
  Weight: 3.9 kg

DRUGS (12)
  1. PAXIL [Suspect]
     Indication: DEPRESSION
     Dosage: 40MG PER DAY
     Dates: start: 19990101, end: 20061101
  2. PAROXETINE HCL [Suspect]
     Indication: DEPRESSION
     Dosage: 20MG PER DAY
     Dates: start: 19990501, end: 20061101
  3. PRENATAL VITAMINS [Concomitant]
  4. LANTUS [Concomitant]
  5. HUMALOG [Concomitant]
  6. ROCEPHIN [Concomitant]
  7. ZITHROMAX [Concomitant]
  8. BETA AGONIST [Concomitant]
  9. CORTICOSTEROID [Concomitant]
  10. MAGNESIUM SULFATE [Concomitant]
  11. TORADOL [Concomitant]
  12. CELESTONE [Concomitant]

REACTIONS (5)
  - CRANIOSYNOSTOSIS [None]
  - DRUG EXPOSURE DURING PREGNANCY [None]
  - HEART DISEASE CONGENITAL [None]
  - PLAGIOCEPHALY [None]
  - SKULL MALFORMATION [None]
